FAERS Safety Report 10423377 (Version 1)
Quarter: 2014Q3

REPORT INFORMATION
  Report Type: Spontaneous
  Country: US (occurrence: US)
  Receive Date: 20140902
  Receipt Date: 20140902
  Transmission Date: 20150326
  Serious: Yes (Other)
  Sender: FDA-Public Use
  Company Number: US-BAYER-2014-126621

PATIENT
  Age: 24 Year
  Sex: Female

DRUGS (5)
  1. LABETALOL [Concomitant]
     Active Substance: LABETALOL\LABETALOL HYDROCHLORIDE
     Indication: HYPERTENSION
     Route: 048
  2. MAGNESIUM SULFATE [Concomitant]
     Active Substance: MAGNESIUM SULFATE
     Indication: CONVULSION PROPHYLAXIS
  3. NIFEDIPINE (CC) [Suspect]
     Active Substance: NIFEDIPINE
     Indication: HYPERTENSION
     Route: 048
  4. BETAMETHASONE [Concomitant]
     Active Substance: BETAMETHASONE
     Indication: MATERNAL THERAPY TO ENHANCE FOETAL LUNG MATURITY
  5. METYRAPONE [Concomitant]
     Active Substance: METYRAPONE
     Indication: CUSHING^S SYNDROME
     Dosage: 250 MG, BID

REACTIONS (4)
  - Exposure during pregnancy [None]
  - Pre-eclampsia [None]
  - Foetal growth restriction [None]
  - Premature delivery [None]
